FAERS Safety Report 5827307-5 (Version None)
Quarter: 2008Q3

REPORT INFORMATION
  Report Type: 
  Country: None (occurrence: None)
  Receive Date: 20080725
  Receipt Date: 20080716
  Transmission Date: 20090109
  Serious: Yes (Hospitalization)
  Sender: FDA-Public Use
  Company Number: GXKR2008DE06657

PATIENT
  Age: 27 Year
  Sex: Male

DRUGS (1)
  1. DOXYCYCLINE [Suspect]
     Dosage: ORAL
     Route: 048

REACTIONS (1)
  - EPILEPSY [None]
